FAERS Safety Report 7686594-1 (Version None)
Quarter: 2011Q3

REPORT INFORMATION
  Report Type: 
  Country: None (occurrence: None)
  Receive Date: 20110816
  Receipt Date: 20110808
  Transmission Date: 20111222
  Serious: Yes (Life-Threatening, Disabling)
  Sender: FDA-Public Use
  Company Number: AU-MERCK-1105USA03070

PATIENT
  Age: 62 Year
  Sex: Male
  Weight: 90 kg

DRUGS (2)
  1. LIPITOR [Suspect]
     Route: 065
     Dates: end: 20090101
  2. ZETIA [Suspect]
     Route: 048
     Dates: start: 20101104, end: 20110501

REACTIONS (1)
  - PHOTOSENSITIVITY REACTION [None]
